FAERS Safety Report 8644225 (Version 2)
Quarter: 2016Q2

REPORT INFORMATION
  Report Type: Spontaneous
  Country: CH (occurrence: CH)
  Receive Date: 20120629
  Receipt Date: 20160526
  Transmission Date: 20160815
  Serious: Yes (Life-Threatening, Hospitalization)
  Sender: FDA-Public Use
  Company Number: CH-BAYER-2012-063695

PATIENT
  Age: 61 Year
  Sex: Female

DRUGS (9)
  1. CIPROXIN [Suspect]
     Active Substance: CIPROFLOXACIN
     Dosage: 200 MG, QD
     Route: 041
     Dates: end: 20120314
  2. LISINOPRIL AND HYDROCHLOROTHIAZIDE [Concomitant]
     Active Substance: HYDROCHLOROTHIAZIDE\LISINOPRIL
     Dosage: UNK
     Route: 048
  3. MYSOLINE [Suspect]
     Active Substance: PRIMIDONE
     Indication: PARKINSON^S DISEASE
     Dosage: 500 MG, PER 8 HOURS
     Route: 048
     Dates: start: 201108, end: 20120228
  4. PROPRANOLOL HELVEPHARM [Concomitant]
     Dosage: 40 MG, TID
     Route: 048
     Dates: start: 2011, end: 20120303
  5. PANTOZOL [Concomitant]
     Active Substance: PANTOPRAZOLE SODIUM
     Dosage: 40 MG, QD
     Route: 048
     Dates: start: 20120304, end: 20120319
  6. MEROPENEM. [Suspect]
     Active Substance: MEROPENEM
     Dosage: UNK
     Route: 041
     Dates: start: 201203, end: 201203
  7. ASPIRIN CARDIO [Concomitant]
     Active Substance: ASPIRIN
     Dosage: 100 MG, QD
     Route: 048
  8. CEFTRIAXON [Suspect]
     Active Substance: CEFTRIAXONE
     Dosage: UNK
     Route: 041
     Dates: start: 20120303, end: 201203
  9. FLAGYL [Concomitant]
     Active Substance: METRONIDAZOLE\METRONIDAZOLE HYDROCHLORIDE
     Dosage: 500 MG, TID
     Route: 048
     Dates: start: 201203, end: 20120314

REACTIONS (6)
  - Pyrexia [Recovering/Resolving]
  - Acute kidney injury [Recovering/Resolving]
  - Drug reaction with eosinophilia and systemic symptoms [Recovering/Resolving]
  - Tubulointerstitial nephritis [Recovering/Resolving]
  - Mixed liver injury [Recovering/Resolving]
  - Dermatitis bullous [Recovering/Resolving]

NARRATIVE: CASE EVENT DATE: 20120228
